FAERS Safety Report 20860747 (Version 1)
Quarter: 2022Q2

REPORT INFORMATION
  Report Type: Spontaneous
  Country: BR (occurrence: BR)
  Receive Date: 20220523
  Receipt Date: 20220523
  Transmission Date: 20220721
  Serious: Yes (Other)
  Sender: FDA-Public Use
  Company Number: BR-TAKEDA-2022TUS032848

PATIENT

DRUGS (3)
  1. ENTYVIO [Suspect]
     Active Substance: VEDOLIZUMAB
     Indication: Product used for unknown indication
     Dosage: UNK
     Route: 065
  2. INFLIXIMAB [Concomitant]
     Active Substance: INFLIXIMAB
     Dosage: UNK
  3. CERTOLIZUMAB [Concomitant]
     Active Substance: CERTOLIZUMAB
     Dosage: UNK

REACTIONS (12)
  - Groin abscess [Unknown]
  - Pain [Unknown]
  - Eye pain [Unknown]
  - Skin burning sensation [Unknown]
  - Rhinorrhoea [Unknown]
  - Gingival swelling [Unknown]
  - Aphthous ulcer [Unknown]
  - Pharyngeal erythema [Unknown]
  - Oral discomfort [Unknown]
  - Subcutaneous abscess [Unknown]
  - Headache [Unknown]
  - Tongue discomfort [Unknown]
